FAERS Safety Report 6864829-2 (Version None)
Quarter: 2010Q3

REPORT INFORMATION
  Report Type: 
  Country: None (occurrence: None)
  Receive Date: 20100721
  Receipt Date: 20080408
  Transmission Date: 20110219
  Serious: No
  Sender: FDA-Public Use
  Company Number: US-PFIZER INC-2008031845

PATIENT
  Sex: Male
  Weight: 108.9 kg

DRUGS (3)
  1. CHANTIX [Suspect]
     Dates: start: 20080325, end: 20080330
  2. RANITIDINE [Concomitant]
     Indication: GASTROOESOPHAGEAL REFLUX DISEASE
  3. ANTIHYPERTENSIVES [Concomitant]

REACTIONS (4)
  - ABDOMINAL DISTENSION [None]
  - EATING DISORDER [None]
  - GASTRIC DISORDER [None]
  - MALAISE [None]
